FAERS Safety Report 4752580-4 (Version None)
Quarter: 2005Q3

REPORT INFORMATION
  Report Type: 
  Country: None (occurrence: None)
  Receive Date: 20050824
  Receipt Date: 20050812
  Transmission Date: 20060218
  Serious: Yes (Hospitalization, Other)
  Sender: FDA-Public Use
  Company Number: 2005116609

PATIENT
  Sex: Male
  Weight: 106.5953 kg

DRUGS (5)
  1. NIFEDIPINE [Suspect]
     Indication: HYPERTENSION
     Dosage: 60 MG (60 MG, DAILY INTERVAL:  EVERY DAY)
     Dates: start: 20050601
  2. XANAX [Suspect]
     Indication: ANXIETY
     Dosage: 1 MG (1 MG, DAILY INTERVAL:  EVERY DAY
  3. LORTAB [Concomitant]
  4. BENADRYL [Concomitant]
  5. TYLENOL [Concomitant]

REACTIONS (6)
  - CARDIAC FAILURE CONGESTIVE [None]
  - CARDIOMEGALY [None]
  - ECONOMIC PROBLEM [None]
  - JOINT SWELLING [None]
  - PNEUMONIA [None]
  - WEIGHT INCREASED [None]
